FAERS Safety Report 7332730-6 (Version None)
Quarter: 2011Q1

REPORT INFORMATION
  Report Type: 
  Country: None (occurrence: None)
  Receive Date: 20110304
  Receipt Date: 20101019
  Transmission Date: 20110831
  Serious: Yes (Other)
  Sender: FDA-Public Use
  Company Number: US-WATSON-2010-13871

PATIENT
  Sex: Male

DRUGS (2)
  1. METOCLOPRAMIDE HYDROCHLORIDE [Suspect]
     Dosage: UNK
     Route: 048
     Dates: start: 20010701, end: 20090901
  2. REGLAN [Suspect]
     Dosage: UNK
     Route: 048
     Dates: start: 20010701, end: 20090901

REACTIONS (5)
  - TARDIVE DYSKINESIA [None]
  - PARKINSONISM [None]
  - RESTLESS LEGS SYNDROME [None]
  - TREMOR [None]
  - INCORRECT DRUG ADMINISTRATION DURATION [None]
